FAERS Safety Report 9407253 (Version 1)
Quarter: 2013Q3

REPORT INFORMATION
  Report Type: Spontaneous
  Country: US (occurrence: US)
  Receive Date: 20130718
  Receipt Date: 20130718
  Transmission Date: 20140515
  Serious: Yes (Other)
  Sender: FDA-Public Use
  Company Number: US-PFIZER INC-2013210694

PATIENT
  Age: 9 Year
  Sex: Male
  Weight: 34.01 kg

DRUGS (2)
  1. SERTRALINE HCL [Suspect]
     Indication: ANXIETY
     Dosage: 25 MG DAILY
     Dates: start: 20130710, end: 20130715
  2. SERTRALINE HCL [Suspect]
     Indication: DEPRESSION

REACTIONS (7)
  - Suicidal behaviour [Unknown]
  - Abnormal behaviour [Recovering/Resolving]
  - Agitation [Recovering/Resolving]
  - Mania [Recovering/Resolving]
  - Drug ineffective [Recovering/Resolving]
  - Insomnia [Recovering/Resolving]
  - Abdominal discomfort [Recovering/Resolving]
